FAERS Safety Report 8369391-3 (Version None)
Quarter: 2012Q2

REPORT INFORMATION
  Report Type: 
  Country: None (occurrence: None)
  Receive Date: 20120518
  Receipt Date: 20120509
  Transmission Date: 20120825
  Serious: Yes (Other)
  Sender: FDA-Public Use
  Company Number: US-JNJFOC-20120509753

PATIENT
  Sex: Female

DRUGS (5)
  1. ASPIRIN [Concomitant]
     Indication: BLOOD PRESSURE
  2. SOTALOL HCL [Concomitant]
     Indication: ARRHYTHMIA
     Dates: start: 20120101
  3. XARELTO [Suspect]
     Indication: ATRIAL FIBRILLATION
     Route: 048
     Dates: start: 20120505
  4. DIOVAN [Concomitant]
     Indication: BLOOD PRESSURE
  5. LEVOTHYROXINE SODIUM [Concomitant]
     Indication: THYROID DISORDER

REACTIONS (2)
  - DISLOCATION OF VERTEBRA [None]
  - INCORRECT DOSE ADMINISTERED [None]
